FAERS Safety Report 7756654-5 (Version None)
Quarter: 2011Q3

REPORT INFORMATION
  Report Type: 
  Country: None (occurrence: None)
  Receive Date: 20110916
  Receipt Date: 20110913
  Transmission Date: 20111222
  Serious: Yes (Other)
  Sender: FDA-Public Use
  Company Number: US-PFIZER INC-2011142684

PATIENT
  Sex: Male
  Weight: 74 kg

DRUGS (1)
  1. CHANTIX [Suspect]
     Indication: SMOKING CESSATION THERAPY
     Dosage: UNK
     Route: 048
     Dates: start: 20110404, end: 20110601

REACTIONS (5)
  - SECRETION DISCHARGE [None]
  - CYST RUPTURE [None]
  - FURUNCLE [None]
  - SKIN LESION [None]
  - DRUG INEFFECTIVE [None]
